FAERS Safety Report 4472820-9 (Version None)
Quarter: 2004Q4

REPORT INFORMATION
  Report Type: 
  Country: None (occurrence: None)
  Receive Date: 20041008
  Receipt Date: 20040929
  Transmission Date: 20050328
  Serious: Yes (Hospitalization, Disabling)
  Sender: FDA-Public Use
  Company Number: 2004-05-1598

PATIENT
  Age: 52 Year
  Sex: Male
  Weight: 85 kg

DRUGS (4)
  1. PEG-INTRON [Suspect]
     Indication: HEPATITIS C
     Dosage: 120 MCG QWK SUBCUTANEOUS
     Route: 058
     Dates: start: 20031201, end: 20040201
  2. RIBAVIRIN [Suspect]
     Indication: HEPATITIS C
     Dosage: 1200 MG QD ORAL
     Route: 048
     Dates: start: 20031101
  3. PEGASYS [Suspect]
     Indication: HEPATITIS C
     Dosage: 80 MCG QWK
     Dates: start: 20031101, end: 20031201
  4. ANTI-DIABETIC NOS [Concomitant]

REACTIONS (13)
  - ACTIVITIES OF DAILY LIVING IMPAIRED [None]
  - ARTHRALGIA [None]
  - ASTHENIA [None]
  - CEREBROVASCULAR DISORDER [None]
  - DEMYELINATION [None]
  - DIFFICULTY IN WALKING [None]
  - MULTIPLE SCLEROSIS [None]
  - NEUROPATHY PERIPHERAL [None]
  - PARAESTHESIA [None]
  - PARESIS [None]
  - PYREXIA [None]
  - TINNITUS [None]
  - VASCULITIS [None]
